FAERS Safety Report 21826280 (Version 1)
Quarter: 2023Q1

REPORT INFORMATION
  Report Type: Report from Study
  Country: IT (occurrence: IT)
  Receive Date: 20230106
  Receipt Date: 20230106
  Transmission Date: 20230418
  Serious: Yes (Other)
  Sender: FDA-Public Use
  Company Number: IT-BAYER-2022A176371

PATIENT

DRUGS (1)
  1. EYLEA [Suspect]
     Active Substance: AFLIBERCEPT
     Indication: Product used for unknown indication
     Dosage: SOLUTION FOR INJECTION
     Route: 031

REACTIONS (2)
  - Angle closure glaucoma [Unknown]
  - Intraocular pressure increased [Unknown]
